FAERS Safety Report 20877138 (Version 2)
Quarter: 2022Q2

REPORT INFORMATION
  Report Type: Spontaneous
  Country: US (occurrence: US)
  Receive Date: 20220526
  Receipt Date: 20220611
  Transmission Date: 20220721
  Serious: Yes (Hospitalization)
  Sender: FDA-Public Use
  Company Number: US-TEVA-2022-US-2039448

PATIENT
  Age: 34 Year
  Sex: Male

DRUGS (5)
  1. METHYLPREDNISOLONE [Suspect]
     Active Substance: METHYLPREDNISOLONE
     Indication: Progressive multifocal leukoencephalopathy
     Dosage: 1 GRAM DAILY; ADJUNCTIVE THERAPY
     Route: 042
  2. METHYLPREDNISOLONE [Suspect]
     Active Substance: METHYLPREDNISOLONE
     Indication: Immune reconstitution inflammatory syndrome
  3. PREDNISONE [Suspect]
     Active Substance: PREDNISONE
     Indication: Progressive multifocal leukoencephalopathy
     Dosage: 60 MILLIGRAM DAILY; ADJUNCTIVE THERAPY; 60 MG/DAY WITH TAPER OVER 6 WEEKS
     Route: 048
  4. PREDNISONE [Suspect]
     Active Substance: PREDNISONE
     Indication: Immune reconstitution inflammatory syndrome
  5. BICTEGRAVIR\EMTRICITABINE\TENOFOVIR ALAFENAMIDE [Suspect]
     Active Substance: BICTEGRAVIR\EMTRICITABINE\TENOFOVIR ALAFENAMIDE
     Indication: Acquired immunodeficiency syndrome
     Route: 065

REACTIONS (4)
  - Paradoxical drug reaction [Recovering/Resolving]
  - Progressive multifocal leukoencephalopathy [Recovering/Resolving]
  - Immune reconstitution inflammatory syndrome [Recovering/Resolving]
  - Rebound effect [Recovering/Resolving]
